FAERS Safety Report 10331789 (Version 1)
Quarter: 2014Q3

REPORT INFORMATION
  Report Type: Spontaneous
  Country: US (occurrence: None)
  Receive Date: 20140721
  Receipt Date: 20140721
  Transmission Date: 20150326
  Serious: Yes (Other)
  Sender: FDA-Public Use
  Company Number: None

PATIENT
  Age: 68 Year
  Sex: Male

DRUGS (1)
  1. NEXAVAR [Suspect]
     Active Substance: SORAFENIB
     Indication: HEPATITIS B
     Dosage: BY MOUTH
     Route: 048
     Dates: start: 20130120

REACTIONS (3)
  - Weight decreased [None]
  - Decreased appetite [None]
  - Pruritus [None]

NARRATIVE: CASE EVENT DATE: 20130920
